FAERS Safety Report 13370131 (Version 1)
Quarter: 2017Q1

REPORT INFORMATION
  Report Type: Report from Study
  Country: CU (occurrence: CU)
  Receive Date: 20170324
  Receipt Date: 20170324
  Transmission Date: 20170429
  Serious: Yes (Other)
  Sender: FDA-Public Use
  Company Number: CU-MYLANLABS-2017M1018597

PATIENT

DRUGS (2)
  1. CISPLATIN. [Suspect]
     Active Substance: CISPLATIN
     Indication: SQUAMOUS CELL CARCINOMA
     Dosage: 3 CYCLES; CHEMOTHERAPY
     Route: 057
  2. CISPLATIN. [Suspect]
     Active Substance: CISPLATIN
     Dosage: 3 CYCLES; CHEMOTHERAPY
     Route: 061

REACTIONS (4)
  - Conjunctival haemorrhage [Recovering/Resolving]
  - Administration site reaction [Recovering/Resolving]
  - Eye oedema [Recovering/Resolving]
  - Administration site inflammation [Recovering/Resolving]
